FAERS Safety Report 6026686-6 (Version None)
Quarter: 2008Q4

REPORT INFORMATION
  Report Type: 
  Country: None (occurrence: None)
  Receive Date: 20081231
  Receipt Date: 20081216
  Transmission Date: 20090506
  Serious: Yes (Hospitalization)
  Sender: FDA-Public Use
  Company Number: KV200801177

PATIENT
  Age: 72 Year
  Sex: Male
  Weight: 102 kg

DRUGS (6)
  1. ISOSORBIDE MONONITRATE [Suspect]
     Indication: ATRIOVENTRICULAR BLOCK
     Dosage: 60 MG, BID, ORAL
     Route: 048
     Dates: start: 20050101
  2. LISINOPRIL [Concomitant]
  3. LEXAPRO [Concomitant]
  4. SIMVASTATIN [Concomitant]
  5. FLOMAS (MORNIFLUMATE) [Concomitant]
  6. ASPIRIN [Concomitant]

REACTIONS (5)
  - HEART RATE DECREASED [None]
  - HYPOTENSION [None]
  - LOSS OF CONSCIOUSNESS [None]
  - PRODUCT QUALITY ISSUE [None]
  - SYNCOPE [None]
